FAERS Safety Report 10166000 (Version 1)
Quarter: 2014Q2

REPORT INFORMATION
  Report Type: Spontaneous
  Country: US (occurrence: US)
  Receive Date: 20140511
  Receipt Date: 20140511
  Transmission Date: 20141212
  Serious: No
  Sender: FDA-Public Use
  Company Number: US-009507513-2012SP036412

PATIENT
  Age: 4 Year
  Sex: Male

DRUGS (1)
  1. CLARITIN KIDS [Suspect]
     Indication: PRODUCT USED FOR UNKNOWN INDICATION
     Dosage: 10 MG, ONCE
     Route: 048

REACTIONS (1)
  - Overdose [Unknown]
